FAERS Safety Report 20310601 (Version 1)
Quarter: 2022Q1

REPORT INFORMATION
  Report Type: Spontaneous
  Country: US (occurrence: None)
  Receive Date: 20220107
  Receipt Date: 20220107
  Transmission Date: 20220424
  Serious: Yes (Other)
  Sender: FDA-Public Use
  Company Number: None

PATIENT
  Sex: Male

DRUGS (2)
  1. GUANFACINE [Suspect]
     Active Substance: GUANFACINE
  2. PROVIGIL [Suspect]
     Active Substance: MODAFINIL

REACTIONS (1)
  - Treatment failure [None]
